FAERS Safety Report 4637641-2 (Version None)
Quarter: 2005Q2

REPORT INFORMATION
  Report Type: 
  Country: None (occurrence: None)
  Receive Date: 20050418
  Receipt Date: 20050328
  Transmission Date: 20051028
  Serious: Yes (Other)
  Sender: FDA-Public Use
  Company Number: JP-GLAXOSMITHKLINE-B0376128A

PATIENT
  Age: 57 Year
  Sex: Female

DRUGS (4)
  1. PAXIL [Suspect]
     Indication: DEPRESSION
     Dosage: 20MG PER DAY
     Route: 048
     Dates: start: 20030715
  2. VASOLAN [Suspect]
     Dosage: 80MG THREE TIMES PER DAY
     Route: 048
  3. SELOKEN [Suspect]
     Dosage: 120MG PER DAY
     Route: 048
  4. LIVALO [Suspect]
     Dosage: 2MG PER DAY
     Route: 048

REACTIONS (3)
  - ALCOHOL POISONING [None]
  - HALLUCINATION, VISUAL [None]
  - ILLUSION [None]
